FAERS Safety Report 16686892 (Version 2)
Quarter: 2019Q3

REPORT INFORMATION
  Report Type: Spontaneous
  Country: BR (occurrence: BR)
  Receive Date: 20190809
  Receipt Date: 20190823
  Transmission Date: 20191004
  Serious: Yes (Other)
  Sender: FDA-Public Use
  Company Number: BR-TORRENT-00005065

PATIENT
  Age: 66 Year
  Sex: Male
  Weight: 96 kg

DRUGS (3)
  1. NATRILIX SR [Concomitant]
     Active Substance: INDAPAMIDE
     Indication: HYPERTENSION
     Dosage: HALF OF A TABLET DAILY
     Route: 048
     Dates: start: 2014
  2. TORLOS [Suspect]
     Active Substance: LOSARTAN POTASSIUM
     Indication: HYPERTENSION
     Dosage: 1 TABLET/MORNING AND 1 TABLET/NIGHT
     Route: 048
     Dates: end: 20190730
  3. CRESTOR [Concomitant]
     Active Substance: ROSUVASTATIN CALCIUM
     Indication: BLOOD CHOLESTEROL INCREASED
     Dosage: HALF A TABLET DAILY
     Route: 048

REACTIONS (1)
  - Papillary thyroid cancer [Not Recovered/Not Resolved]

NARRATIVE: CASE EVENT DATE: 201907
